FAERS Safety Report 8780179 (Version 1)
Quarter: 2012Q4

REPORT INFORMATION
  Report Type: Spontaneous
  Country: LK (occurrence: None)
  Receive Date: 20120829
  Receipt Date: 20120829
  Transmission Date: 20130627
  Serious: Yes (Death)
  Sender: FDA-Public Use
  Company Number: 2012LK0263

PATIENT
  Age: 1 Month
  Sex: Female

DRUGS (1)
  1. ORFADIN [Suspect]
     Dates: start: 201206, end: 201206

REACTIONS (1)
  - Death [None]
